FAERS Safety Report 6814371-X (Version None)
Quarter: 2010Q3

REPORT INFORMATION
  Report Type: 
  Country: None (occurrence: None)
  Receive Date: 20100702
  Receipt Date: 20100625
  Transmission Date: 20110219
  Serious: Yes (Life-Threatening, Hospitalization)
  Sender: FDA-Public Use
  Company Number: DE-ELI_LILLY_AND_COMPANY-DE201006001233

PATIENT
  Sex: Female
  Weight: 45 kg

DRUGS (10)
  1. PEMETREXED [Suspect]
     Indication: HEAD AND NECK CANCER
     Dosage: 500 MG/M2, DAY 1 EVERY 21 DAYS
     Route: 042
     Dates: start: 20100526, end: 20100602
  2. PEMETREXED [Suspect]
     Dosage: DOSE REDUCED BY 25% UNK
     Dates: start: 20100624
  3. CETUXIMAB [Suspect]
     Indication: HEAD AND NECK CANCER
     Dosage: 400 MG/M2, DAY 1 CYCLE 1 LOADING DOSE
     Dates: start: 20100526, end: 20100526
  4. CETUXIMAB [Suspect]
     Dosage: 250 MG/M2, WEEKLY (1/W)
     Route: 042
  5. CISPLATIN [Suspect]
     Indication: HEAD AND NECK CANCER
     Dosage: 75 MG/M2, DAY 1 EVERY 21 DAYS
     Route: 042
     Dates: start: 20100526, end: 20100602
  6. CISPLATIN [Suspect]
     Dosage: DOSE REDUCED BY 25%, UNK
     Dates: start: 20100624
  7. FOLIC ACID [Concomitant]
     Indication: PROPHYLAXIS
  8. VITAMIN B-12 [Concomitant]
     Indication: PROPHYLAXIS
  9. DEXAMETHASONE [Concomitant]
     Indication: PROPHYLAXIS
  10. TRIAMTERENE AND HYDROCHLOROTHIAZIDE [Concomitant]
     Indication: HYPERTENSION
     Dosage: UNK, UNKNOWN
     Dates: start: 20000101, end: 20100602

REACTIONS (2)
  - HYPONATRAEMIA [None]
  - INAPPROPRIATE ANTIDIURETIC HORMONE SECRETION [None]
